FAERS Safety Report 17140420 (Version 1)
Quarter: 2019Q4

REPORT INFORMATION
  Report Type: Spontaneous
  Country: US (occurrence: US)
  Receive Date: 20191211
  Receipt Date: 20191211
  Transmission Date: 20200122
  Serious: No
  Sender: FDA-Public Use
  Company Number: US-GLENMARK PHARMACEUTICALS-2019GMK043994

PATIENT

DRUGS (1)
  1. MUPIROCIN OINTMENT USP, 2% [Suspect]
     Active Substance: MUPIROCIN
     Indication: STAPHYLOCOCCAL INFECTION
     Dosage: UNK, TID
     Route: 045
     Dates: start: 20191004, end: 20191014

REACTIONS (5)
  - Application site pain [Unknown]
  - Malaise [Unknown]
  - Incorrect route of product administration [Unknown]
  - Product use in unapproved indication [Unknown]
  - Headache [Unknown]

NARRATIVE: CASE EVENT DATE: 201910
